FAERS Safety Report 19898360 (Version 1)
Quarter: 2021Q3

REPORT INFORMATION
  Report Type: Spontaneous
  Country: IT (occurrence: IT)
  Receive Date: 20210929
  Receipt Date: 20210929
  Transmission Date: 20211014
  Serious: Yes (Other)
  Sender: FDA-Public Use
  Company Number: IT-JAZZ-2021-IT-017989

PATIENT
  Age: 58 Year
  Sex: Male

DRUGS (1)
  1. VYXEOS [Suspect]
     Active Substance: CYTARABINE\DAUNORUBICIN
     Indication: ACUTE MYELOID LEUKAEMIA
     Dosage: FIRST VYXEOS INDUCTION
     Dates: start: 20210806

REACTIONS (1)
  - Toxic erythema of chemotherapy [Recovered/Resolved]

NARRATIVE: CASE EVENT DATE: 20210815
